FAERS Safety Report 6213603-9 (Version None)
Quarter: 2009Q2

REPORT INFORMATION
  Report Type: 
  Country: None (occurrence: None)
  Receive Date: 20090603
  Receipt Date: 20090522
  Transmission Date: 20091009
  Serious: Yes (Death, Other)
  Sender: FDA-Public Use
  Company Number: GB-PFIZER INC-2009217483

PATIENT
  Age: 83 Year

DRUGS (2)
  1. VIAGRA [Suspect]
     Route: 048
  2. AMLODIPINE [Concomitant]

REACTIONS (2)
  - DEATH [None]
  - PRIAPISM [None]
